FAERS Safety Report 5479755-3 (Version None)
Quarter: 2007Q4

REPORT INFORMATION
  Report Type: 
  Country: None (occurrence: None)
  Receive Date: 20071008
  Receipt Date: 20070926
  Transmission Date: 20080405
  Serious: Yes (Hospitalization)
  Sender: FDA-Public Use
  Company Number: US-SHR-US-2005-002746

PATIENT
  Age: 35 Year
  Sex: Male

DRUGS (50)
  1. BETAFERON [Suspect]
     Indication: RELAPSING-REMITTING MULTIPLE SCLEROSIS
     Dosage: .25 ML, EVERY 2D
     Route: 058
     Dates: start: 20040514, end: 20040529
  2. BETAFERON [Suspect]
     Dosage: .5 ML, EVERY 2D
     Route: 058
     Dates: start: 20040531, end: 20040609
  3. BETAFERON [Suspect]
     Dosage: .75 ML, EVERY 2D
     Route: 058
     Dates: start: 20040611, end: 20040704
  4. BETAFERON [Suspect]
     Dosage: 1 ML, EVERY 2D
     Route: 058
     Dates: start: 20040706, end: 20050218
  5. BETAFERON [Suspect]
     Dosage: .25 ML, EVERY 2D
     Route: 058
     Dates: start: 20050515, end: 20050520
  6. BETAFERON [Suspect]
     Dosage: .5 ML, EVERY 2D
     Route: 058
     Dates: start: 20050522, end: 20050527
  7. BETAFERON [Suspect]
     Dosage: .75 ML, EVERY 2D
     Route: 058
     Dates: start: 20050529, end: 20050603
  8. BETAFERON [Suspect]
     Dosage: 1 ML, EVERY 2D
     Route: 058
     Dates: start: 20050605
  9. CARBAMAZEPINE [Concomitant]
     Indication: PAIN
     Dosage: 300 MG, 2X/DAY
     Route: 048
     Dates: start: 20010801
  10. NORTRIPTYLINE HCL [Concomitant]
     Dosage: 50 MG, BED T.
     Route: 048
     Dates: start: 20010801, end: 20040615
  11. NORTRIPTYLINE HCL [Concomitant]
     Dosage: 75 MG, BED T.
     Route: 048
     Dates: start: 20040615, end: 20041006
  12. AMANTADINE HCL [Concomitant]
     Indication: FATIGUE
     Dosage: 100 MG, 2X/DAY PRN
     Route: 048
     Dates: start: 20040915, end: 20041101
  13. AMANTADINE HCL [Concomitant]
     Dosage: 100 MG, 2X/DAY
     Route: 048
     Dates: start: 20031101, end: 20040630
  14. ESCITALOPRAM OXALATE [Concomitant]
     Indication: DEPRESSION
     Dosage: 10 MG, 1X/DAY
     Route: 048
     Dates: end: 20031201
  15. ESCITALOPRAM OXALATE [Concomitant]
     Dosage: 10-20 MG, 1X/DAY
     Route: 048
     Dates: start: 20040929
  16. LISINOPRIL [Concomitant]
     Indication: HYPERTENSION
     Dosage: 10 MG, 1X/DAY
     Route: 048
     Dates: end: 20031201
  17. GABAPENTIN [Concomitant]
     Indication: PAIN
     Dosage: 1500 MG DAILY
     Route: 048
     Dates: start: 20030924, end: 20050813
  18. GABAPENTIN [Concomitant]
     Dosage: 600 MG, 3X/DAY
     Route: 048
     Dates: start: 20050813
  19. VITAMIN CAP [Concomitant]
     Indication: VITAMIN SUPPLEMENTATION
     Dosage: DAILY
     Route: 048
     Dates: start: 20030901
  20. DIPHENHYDRAMINE HCL [Concomitant]
     Indication: INSOMNIA
     Dosage: 25 MG - 50 MG PRN
     Route: 048
     Dates: start: 20040101, end: 20050205
  21. BENADRYL [Concomitant]
     Indication: SINUSITIS
     Dosage: 25 MG-50 MG PRN
     Route: 048
     Dates: start: 20030901, end: 20040513
  22. BENADRYL [Concomitant]
     Dosage: 25 MG-50 MG PRN
     Route: 048
     Dates: start: 20040515
  23. CAFFEINE [Concomitant]
     Dosage: 200 MG, AS REQ'D, DAILY
     Route: 048
     Dates: start: 20040623, end: 20041101
  24. ALPRAZOLAM [Concomitant]
     Indication: ANXIETY
     Dosage: 1 MG (1/2-1 TAB), 3X/DAY, PRN
     Route: 048
     Dates: start: 20040814
  25. SIMVASTATIN [Concomitant]
     Dosage: 40 MG, 1X/DAY
     Route: 048
     Dates: start: 20040714, end: 20070401
  26. MODAFINIL [Concomitant]
     Dosage: 100-200 MG, 1X/DAY
     Route: 048
     Dates: start: 20040701, end: 20040914
  27. SILDENAFIL [Concomitant]
     Indication: SEXUAL DYSFUNCTION
     Dosage: 50 MG, AS REQ'D
     Route: 048
     Dates: start: 20040922
  28. DAYQUIL ^FOX^ [Concomitant]
     Indication: SINUS DISORDER
     Dosage: AS REQ'D
     Route: 048
     Dates: start: 20030101
  29. NYQUIL [Concomitant]
     Indication: SINUS DISORDER
     Dosage: AS REQ'D AT BEDTIME
     Route: 048
     Dates: start: 20030101
  30. ACETAMINOPHEN [Concomitant]
     Dosage: 500 MG, AS REQ'D
     Route: 048
     Dates: start: 20030901
  31. PREDNISONE [Concomitant]
     Indication: MULTIPLE SCLEROSIS RELAPSE
     Dosage: 500 MG, DAILY
     Route: 048
     Dates: start: 20031030, end: 20031101
  32. PREDNISONE [Concomitant]
     Dosage: 300 MG DAILY
     Route: 048
     Dates: start: 20031102, end: 20031102
  33. PREDNISONE [Concomitant]
     Dosage: 200 MG DAILY
     Route: 048
     Dates: start: 20031103, end: 20031103
  34. PREDNISONE [Concomitant]
     Dosage: 100 MG DAILY
     Route: 048
     Dates: start: 20031104, end: 20031104
  35. PREDNISONE [Concomitant]
     Dosage: 50 MG, 1X/DAY
     Route: 048
     Dates: start: 20031105, end: 20031105
  36. PREDNISONE [Concomitant]
     Dosage: 25 MG, 1X/DAY
     Route: 048
     Dates: start: 20031106, end: 20031107
  37. FAMOTIDINE [Concomitant]
     Indication: PROPHYLAXIS AGAINST GASTROINTESTINAL ULCER
     Dosage: 40 MG, 1X/DAY
     Route: 048
     Dates: start: 20031030, end: 20031119
  38. DIPHENHYDRAMINE HCL [Concomitant]
     Dosage: 25 MG QPM
     Route: 048
     Dates: start: 20040514, end: 20040514
  39. DARVOCET [Concomitant]
     Indication: INJECTION SITE PAIN
     Dosage: 100-200 MG Q4-6H PRN
     Route: 048
     Dates: start: 20040814, end: 20040901
  40. IBUPROFEN [Concomitant]
     Indication: PROPHYLAXIS
     Dosage: 400 MG Q4H PRN
     Route: 048
     Dates: start: 20040514, end: 20041201
  41. HYDROCHLOROTHIAZIDE W/IRBESARTAN [Concomitant]
     Indication: HYPERTENSION
     Dosage: UNKNOWN DOSE, DAILY
     Route: 048
     Dates: end: 20031101
  42. HYDROCHLOROTHIAZIDE W/IRBESARTAN [Concomitant]
     Dosage: 150/12.8 MG DAILY
     Route: 048
     Dates: start: 20040714, end: 20041215
  43. HYDROCHLOROTHIAZIDE W/IRBESARTAN [Concomitant]
     Dosage: 300/12.8 MG DAILY
     Route: 048
     Dates: start: 20041215, end: 20050304
  44. HYDROCHLOROTHIAZIDE W/IRBESARTAN [Concomitant]
     Dosage: 150/12.8 MG, AS REQ'D, DAILY
     Route: 048
     Dates: start: 20050304
  45. MODAFINIL [Concomitant]
     Indication: FATIGUE
     Dosage: 200 MG, 1X/DAY
     Route: 048
     Dates: start: 20041101, end: 20050304
  46. MODAFINIL [Concomitant]
     Dosage: 200 MG, AS REQ'D
     Route: 048
     Dates: start: 20050304, end: 20060801
  47. CEFDINIR [Concomitant]
     Dosage: 300 MG, 2X/DAY
     Route: 048
     Dates: start: 20040512, end: 20040516
  48. TERAZOSIN HCL [Concomitant]
     Dosage: 1-2 MG, BED T.
     Route: 048
     Dates: start: 20050205, end: 20050201
  49. TERAZOSIN HCL [Concomitant]
     Dosage: 4 MG, BED T.
     Route: 048
     Dates: start: 20050201, end: 20050813
  50. TERAZOSIN HCL [Concomitant]
     Dosage: 10 MG, BED T.
     Route: 048
     Dates: start: 20050813, end: 20051116

REACTIONS (1)
  - VIRAL INFECTION [None]
